FAERS Safety Report 9933119 (Version 1)
Quarter: 2014Q1

REPORT INFORMATION
  Report Type: Spontaneous
  Country: US (occurrence: US)
  Receive Date: 20140228
  Receipt Date: 20140228
  Transmission Date: 20141002
  Serious: No
  Sender: FDA-Public Use
  Company Number: US-ABBVIE-13P-163-1075750-00

PATIENT
  Age: 53 Year
  Sex: Male
  Weight: 87.17 kg

DRUGS (8)
  1. ANDROGEL [Suspect]
     Indication: BLOOD TESTOSTERONE DECREASED
     Dosage: 4 PUMP ACTUATIONS
     Dates: start: 20130409
  2. MORPHINE [Concomitant]
     Indication: PAIN
  3. MORPHINE [Concomitant]
     Indication: PAIN
  4. BABY ASPIRIN [Concomitant]
     Indication: PRODUCT USED FOR UNKNOWN INDICATION
  5. LISINOPRIL [Concomitant]
     Indication: HYPERTENSION
  6. AMBIEN [Concomitant]
     Indication: INSOMNIA
  7. IMITREX [Concomitant]
     Indication: MIGRAINE
  8. CYMBALTA [Concomitant]
     Indication: PAIN MANAGEMENT

REACTIONS (2)
  - Drug administered at inappropriate site [Unknown]
  - Product packaging issue [Unknown]
